FAERS Safety Report 4541565-9 (Version None)
Quarter: 2004Q4

REPORT INFORMATION
  Report Type: 
  Country: None (occurrence: None)
  Receive Date: 20041230
  Receipt Date: 20041115
  Transmission Date: 20050328
  Serious: Yes (Hospitalization)
  Sender: FDA-Public Use
  Company Number: PHBS2004JP15593

PATIENT
  Sex: Female

DRUGS (5)
  1. SANDOSTATIN LAR [Suspect]
     Indication: ACROMEGALY
     Dosage: 20 MG, ONCE/SINGLE
     Route: 030
     Dates: start: 20040903, end: 20040903
  2. SANDOSTATIN LAR [Suspect]
     Dosage: 20 MG, ONCE/SINGLE
     Route: 030
     Dates: start: 20041001, end: 20041001
  3. SANDOSTATIN LAR [Suspect]
     Dosage: 20 MG, ONCE/SINGLE
     Route: 030
     Dates: start: 20041029, end: 20041029
  4. SANDOSTATIN LAR [Suspect]
     Dosage: 20 MG, ONCE/SINGLE
     Route: 030
     Dates: start: 20041203, end: 20041203
  5. SANDOSTATIN [Concomitant]
     Indication: ACROMEGALY
     Dosage: 300 UG/D
     Route: 065

REACTIONS (2)
  - DIABETIC KETOACIDOSIS [None]
  - HYPERGLYCAEMIA [None]
